FAERS Safety Report 6114947-1 (Version None)
Quarter: 2009Q1

REPORT INFORMATION
  Report Type: 
  Country: None (occurrence: None)
  Receive Date: 20090313
  Receipt Date: 20090304
  Transmission Date: 20090719
  Serious: Yes (Hospitalization, Other)
  Sender: FDA-Public Use
  Company Number: US-ELI_LILLY_AND_COMPANY-US200903001057

PATIENT
  Sex: Male

DRUGS (5)
  1. CYMBALTA [Suspect]
     Dosage: 60 MG, DAILY (1/D)
     Route: 050
  2. INSULIN [Concomitant]
     Indication: TYPE 1 DIABETES MELLITUS
  3. PLAVIX [Concomitant]
     Indication: BLOOD CHOLESTEROL INCREASED
  4. PRAVACHOL [Concomitant]
     Indication: BLOOD CHOLESTEROL INCREASED
  5. VFEND [Concomitant]
     Indication: FUNGAL INFECTION
     Dosage: UNK, UNK
     Dates: start: 20090101

REACTIONS (3)
  - FUNGAL INFECTION [None]
  - GASTROINTESTINAL TUBE INSERTION [None]
  - HOSPITALISATION [None]
